FAERS Safety Report 11713194 (Version 2)
Quarter: 2016Q1

REPORT INFORMATION
  Report Type: Spontaneous
  Country: US (occurrence: US)
  Receive Date: 20151109
  Receipt Date: 20160120
  Transmission Date: 20160525
  Serious: No
  Sender: FDA-Public Use
  Company Number: US-LEO PHARMA-237970

PATIENT
  Age: 66 Year
  Sex: Female

DRUGS (1)
  1. PICATO [Suspect]
     Active Substance: INGENOL MEBUTATE
     Indication: ACTINIC KERATOSIS

REACTIONS (3)
  - Drug administration error [Unknown]
  - Incorrect dose administered [Unknown]
  - Application site burn [Recovered/Resolved]
